FAERS Safety Report 5481062-X (Version None)
Quarter: 2007Q4

REPORT INFORMATION
  Report Type: 
  Country: None (occurrence: None)
  Receive Date: 20071004
  Receipt Date: 20070921
  Transmission Date: 20080405
  Serious: Yes (Hospitalization)
  Sender: FDA-Public Use
  Company Number: 238081K07USA

PATIENT
  Age: 38 Year
  Sex: Female
  Weight: 69.8539 kg

DRUGS (1)
  1. REBIF [Suspect]
     Indication: MULTIPLE SCLEROSIS
     Dates: start: 20040101, end: 20040101

REACTIONS (2)
  - ABASIA [None]
  - DRUG HYPERSENSITIVITY [None]
